FAERS Safety Report 8771065 (Version 6)
Quarter: 2014Q2

REPORT INFORMATION
  Report Type: Report from Study
  Country: US (occurrence: US)
  Receive Date: 20120906
  Receipt Date: 20140501
  Transmission Date: 20141212
  Serious: Yes (Death)
  Sender: FDA-Public Use
  Company Number: US-PFIZER INC-2012204980

PATIENT
  Age: 51 Year
  Sex: Male
  Weight: 108.84 kg

DRUGS (7)
  1. TOFACITINIB CITRATE [Suspect]
     Indication: PSORIASIS
     Dosage: 10 MG, 2X/DAY  (20MG DAILY)
     Route: 048
     Dates: start: 20120619
  2. OXYCODONE HYDROCHLORIDE [Suspect]
     Indication: BACK PAIN
     Dosage: 15 MG, AS NEEDED
     Route: 048
     Dates: start: 20110111
  3. METHADONE HYDROCHLORIDE [Suspect]
     Indication: BACK PAIN
     Dosage: 10 MG, 3X/DAY
     Route: 048
     Dates: start: 20110111
  4. ELAVIL [Suspect]
     Indication: SLEEP DISORDER
     Dosage: 100 MG, 1X/DAY
     Route: 048
     Dates: start: 20110901
  5. LISINOPRIL [Concomitant]
     Indication: HYPERTENSION
     Dosage: 20 MG, 1X/DAY
     Route: 048
     Dates: start: 20100901
  6. ULTRAM [Concomitant]
     Indication: PAIN MANAGEMENT
     Dosage: 50 MG, 3X/DAY
     Route: 048
     Dates: start: 20100901
  7. ALBUTEROL [Concomitant]
     Indication: ASTHMA
     Dosage: 3 PUFFS, 3X/DAY
     Route: 055
     Dates: start: 20111113

REACTIONS (1)
  - Cardiac arrest [Fatal]
